FAERS Safety Report 19587826 (Version 1)
Quarter: 2021Q3

REPORT INFORMATION
  Report Type: Spontaneous
  Country: US (occurrence: US)
  Receive Date: 20210721
  Receipt Date: 20210721
  Transmission Date: 20211014
  Serious: Yes (Other)
  Sender: FDA-Public Use
  Company Number: None

PATIENT
  Age: 75 Year
  Sex: Female
  Weight: 52.2 kg

DRUGS (1)
  1. DICLOFENAC [Suspect]
     Active Substance: DICLOFENAC
     Indication: ABDOMINAL PAIN UPPER
     Dosage: ?          QUANTITY:21 TABLET(S);?
     Route: 048
     Dates: start: 20210719, end: 20210720

REACTIONS (1)
  - Diarrhoea [None]

NARRATIVE: CASE EVENT DATE: 20210720
